FAERS Safety Report 8520474 (Version 6)
Quarter: 2013Q1

REPORT INFORMATION
  Report Type: Report from Study
  Country: AU (occurrence: AU)
  Receive Date: 20120418
  Receipt Date: 20130327
  Transmission Date: 20140127
  Serious: Yes (Hospitalization, Other)
  Sender: FDA-Public Use
  Company Number: AU-CELGENEUS-008-21880-12040528

PATIENT
  Sex: Female
  Weight: 75 kg

DRUGS (6)
  1. REVLIMID\PLACEBO [Suspect]
     Indication: DIFFUSE LARGE B-CELL LYMPHOMA
     Dosage: 25 MILLIGRAM
     Route: 048
     Dates: start: 20111108
  2. REVLIMID\PLACEBO [Suspect]
     Dosage: 25 MILLIGRAM
     Route: 048
     Dates: start: 20120301, end: 20120322
  3. KARVEA [Concomitant]
     Indication: HYPERTENSION
     Route: 065
     Dates: start: 201104
  4. ASPIRINE [Concomitant]
     Indication: PROPHYLAXIS
     Route: 065
     Dates: start: 2000
  5. VITAMIN D [Concomitant]
     Indication: PROPHYLAXIS
     Route: 065
     Dates: start: 2009
  6. OSTELIN [Concomitant]
     Indication: PROPHYLAXIS
     Route: 065
     Dates: start: 2009

REACTIONS (2)
  - Adenocarcinoma of colon [Recovered/Resolved]
  - Anaemia [Recovered/Resolved]
